FAERS Safety Report 11576457 (Version 3)
Quarter: 2015Q4

REPORT INFORMATION
  Report Type: Report from Study
  Country: US (occurrence: US)
  Receive Date: 20150930
  Receipt Date: 20151020
  Transmission Date: 20160304
  Serious: Yes (Hospitalization)
  Sender: FDA-Public Use
  Company Number: US-ALEXION-A201503798

PATIENT
  Age: 21 Year
  Sex: Female

DRUGS (51)
  1. ZOFRAN [Concomitant]
     Active Substance: ONDANSETRON HYDROCHLORIDE
     Indication: NAUSEA
     Dosage: 4 MG, PRN Q8H
     Route: 042
     Dates: end: 20150911
  2. CARVEDILOL. [Concomitant]
     Active Substance: CARVEDILOL
     Indication: PRODUCT USED FOR UNKNOWN INDICATION
     Dosage: 3.125 MG, Q12H
     Route: 048
     Dates: end: 20150806
  3. CARVEDILOL. [Concomitant]
     Active Substance: CARVEDILOL
     Dosage: 6.25 MG, Q12H
     Route: 048
     Dates: end: 20150813
  4. PREDNISONE. [Concomitant]
     Active Substance: PREDNISONE
     Indication: PRODUCT USED FOR UNKNOWN INDICATION
     Dosage: 125 MG, Q6H
     Route: 042
     Dates: end: 20150806
  5. PREDNISONE. [Concomitant]
     Active Substance: PREDNISONE
     Dosage: 40 MG, QD
     Route: 048
     Dates: end: 20150807
  6. MYCOSTATIN [Concomitant]
     Active Substance: NYSTATIN
     Indication: PRODUCT USED FOR UNKNOWN INDICATION
     Dosage: 5 ML, QID
     Route: 048
     Dates: end: 20150813
  7. HYDRALAZIN [Concomitant]
     Indication: PRODUCT USED FOR UNKNOWN INDICATION
     Dosage: 12.5 MG, TID
     Route: 048
     Dates: end: 20150807
  8. NORCO [Concomitant]
     Active Substance: ACETAMINOPHEN\HYDROCODONE BITARTRATE
     Dosage: 1 DF, Q4H
     Route: 048
     Dates: end: 20150911
  9. ARTIFICIAL TEARS                   /00445101/ [Concomitant]
     Indication: DRY EYE
     Dosage: 1 DF, PRN AT BEDTIME
     Dates: end: 20150813
  10. DEXTROSE IN WATER [Concomitant]
     Dosage: 500 ML, PRN
     Route: 042
     Dates: end: 20150806
  11. CARVEDILOL. [Concomitant]
     Active Substance: CARVEDILOL
     Dosage: 3.125 MG, Q12H
     Route: 048
     Dates: end: 20150810
  12. CARVEDILOL. [Concomitant]
     Active Substance: CARVEDILOL
     Dosage: 9.375 MG, Q12H
     Route: 048
     Dates: end: 20150907
  13. PREDNISONE. [Concomitant]
     Active Substance: PREDNISONE
     Dosage: 5 MG, SINGLE
     Route: 048
     Dates: end: 20150809
  14. HYDRALAZIN [Concomitant]
     Dosage: 37.5 MG, TID
     Route: 048
     Dates: end: 20150909
  15. HEPARIN [Concomitant]
     Active Substance: HEPARIN SODIUM
     Dosage: 1000 IU, UNK
     Route: 042
     Dates: end: 20150907
  16. ALBUMIN [Concomitant]
     Active Substance: ALBUMIN (HUMAN)
     Indication: HYPOTENSION
     Dosage: 50 ML, PRN DIALYSIS
     Route: 042
     Dates: end: 20150813
  17. ZOFRAN [Concomitant]
     Active Substance: ONDANSETRON HYDROCHLORIDE
     Indication: VOMITING
     Dosage: 4 MG, PRN Q8H
     Route: 042
     Dates: end: 20150813
  18. HUMULIN-N [Concomitant]
     Indication: PRODUCT USED FOR UNKNOWN INDICATION
     Dosage: 5 IU, Q8H
     Route: 058
     Dates: end: 20150813
  19. CARVEDILOL. [Concomitant]
     Active Substance: CARVEDILOL
     Dosage: 3.125 MG, Q12H
     Route: 048
     Dates: end: 20150807
  20. ECULIZUMAB [Suspect]
     Active Substance: ECULIZUMAB
     Indication: HAEMOLYTIC URAEMIC SYNDROME
     Dosage: 900 MG, QW
     Route: 042
     Dates: start: 20150801, end: 20150824
  21. TYLENOL [Concomitant]
     Active Substance: ACETAMINOPHEN
     Indication: PAIN
     Dosage: 500 MG, Q4H
     Route: 065
     Dates: end: 20150911
  22. ALBUTEROL                          /00139501/ [Concomitant]
     Active Substance: ALBUTEROL
     Dosage: 2.5 MG, PRN
     Route: 065
     Dates: end: 20150813
  23. DEXTROSE IN WATER [Concomitant]
     Indication: HYPOGLYCAEMIA
     Dosage: 50 ML, SINGLE
     Route: 042
     Dates: end: 20150728
  24. DEXTROSE IN WATER [Concomitant]
     Dosage: 25 ML, SINGLE
     Route: 042
     Dates: end: 20150728
  25. PEPCID [Concomitant]
     Active Substance: FAMOTIDINE
     Indication: PRODUCT USED FOR UNKNOWN INDICATION
     Dosage: 20 MG, Q12H
     Route: 048
     Dates: end: 20150728
  26. HYDRALAZIN [Concomitant]
     Dosage: 25 MG, TID
     Route: 048
     Dates: end: 20150811
  27. HEPARIN [Concomitant]
     Active Substance: HEPARIN SODIUM
     Indication: PRODUCT USED FOR UNKNOWN INDICATION
     Dosage: 1000 IU, UNK
     Route: 042
     Dates: end: 20150813
  28. ALBUTEROL                          /00139501/ [Concomitant]
     Active Substance: ALBUTEROL
     Indication: DYSPNOEA
     Dosage: 2.5 MG, Q2H
     Route: 065
     Dates: end: 20150728
  29. CARVEDILOL. [Concomitant]
     Active Substance: CARVEDILOL
     Dosage: 12.5 MG, Q12H
     Route: 048
     Dates: end: 20150911
  30. HYDRALAZIN [Concomitant]
     Dosage: 10 MG, Q4H PRN
     Route: 042
     Dates: end: 20150906
  31. HYDRALAZIN [Concomitant]
     Dosage: 50 MG, TID
     Route: 048
     Dates: end: 20150911
  32. MYCELEX TROCHE [Concomitant]
     Indication: PRODUCT USED FOR UNKNOWN INDICATION
     Dosage: 10 MG, TID
     Route: 048
     Dates: end: 20150813
  33. TRANDATE [Concomitant]
     Active Substance: LABETALOL HYDROCHLORIDE
     Dosage: 10 MG, EVERY 15MIN
     Route: 042
     Dates: end: 20150813
  34. LISPRO INSULIN [Concomitant]
     Active Substance: INSULIN LISPRO
     Indication: PRODUCT USED FOR UNKNOWN INDICATION
     Dosage: UNK
     Route: 058
     Dates: end: 20150806
  35. PREDNISONE. [Concomitant]
     Active Substance: PREDNISONE
     Dosage: 20 MG, SINGLE
     Route: 048
     Dates: end: 20150807
  36. PREDNISONE. [Concomitant]
     Active Substance: PREDNISONE
     Dosage: 10 MG, SINGLE
     Route: 048
     Dates: end: 20150808
  37. HYDRALAZIN [Concomitant]
     Dosage: 37.5 MG, TID
     Route: 048
     Dates: end: 20150813
  38. ISORDIL [Concomitant]
     Active Substance: ISOSORBIDE DINITRATE
     Indication: PRODUCT USED FOR UNKNOWN INDICATION
     Dosage: 10 MG, Q8H
     Route: 048
     Dates: end: 20150813
  39. ECULIZUMAB [Suspect]
     Active Substance: ECULIZUMAB
     Dosage: 1200 MG, Q2W
     Route: 042
     Dates: start: 20150908, end: 20150922
  40. TYLENOL [Concomitant]
     Active Substance: ACETAMINOPHEN
     Indication: PYREXIA
     Dosage: 650 MG, EVERY 6 H PRN
     Route: 065
     Dates: end: 20150813
  41. ALBUTEROL                          /00139501/ [Concomitant]
     Active Substance: ALBUTEROL
     Dosage: 2.5 MG, Q6H
     Route: 065
     Dates: end: 20150813
  42. PEPCID [Concomitant]
     Active Substance: FAMOTIDINE
     Dosage: 20 MG, QD
     Route: 048
     Dates: end: 20150813
  43. CARVEDILOL. [Concomitant]
     Active Substance: CARVEDILOL
     Dosage: 6.25 MG, Q12H
     Route: 048
     Dates: end: 20150807
  44. PREDNISONE. [Concomitant]
     Active Substance: PREDNISONE
     Dosage: UNK
  45. ISORDIL [Concomitant]
     Active Substance: ISOSORBIDE DINITRATE
     Dosage: 20 MG, Q8H
     Route: 048
     Dates: end: 20150911
  46. MANITOL [Concomitant]
     Indication: PRODUCT USED FOR UNKNOWN INDICATION
     Dosage: 12.5 G, PRN
     Route: 042
     Dates: end: 20150813
  47. TRANDATE [Concomitant]
     Active Substance: LABETALOL HYDROCHLORIDE
     Indication: ACCELERATED HYPERTENSION
     Dosage: 10 MG, PRN Q2H
     Route: 042
     Dates: end: 20150813
  48. SEVELAMER CARBONATE. [Concomitant]
     Active Substance: SEVELAMER CARBONATE
     Indication: PRODUCT USED FOR UNKNOWN INDICATION
     Dosage: UNK, TID
     Route: 048
     Dates: start: 20150804, end: 20150813
  49. CARVEDILOL. [Concomitant]
     Active Substance: CARVEDILOL
     Dosage: 6.25 MG, Q12H
     Route: 048
     Dates: end: 20150806
  50. HEPARIN [Concomitant]
     Active Substance: HEPARIN SODIUM
     Dosage: 1000 IU, UNK
     Route: 042
     Dates: end: 20150911
  51. NORCO [Concomitant]
     Active Substance: ACETAMINOPHEN\HYDROCODONE BITARTRATE
     Indication: PAIN
     Dosage: 1 DF, Q4H
     Route: 048
     Dates: end: 20150813

REACTIONS (1)
  - Renal impairment [Not Recovered/Not Resolved]

NARRATIVE: CASE EVENT DATE: 20150906
